FAERS Safety Report 20801046 (Version 1)
Quarter: 2022Q2

REPORT INFORMATION
  Report Type: Spontaneous
  Country: AR (occurrence: AR)
  Receive Date: 20220509
  Receipt Date: 20220509
  Transmission Date: 20220720
  Serious: Yes (Other)
  Sender: FDA-Public Use
  Company Number: AR-NOVARTISPH-NVSC2022AR102019

PATIENT
  Age: 58 Year
  Sex: Female

DRUGS (3)
  1. SANDOSTATIN LAR DEPOT [Suspect]
     Active Substance: OCTREOTIDE ACETATE
     Indication: Hypoglycaemia
     Dosage: 20 MG, EVERY 30 DAYS
     Route: 065
  2. SANDOSTATIN LAR DEPOT [Suspect]
     Active Substance: OCTREOTIDE ACETATE
     Dosage: 20 MG, EVERY 20 DAYS
     Route: 065
     Dates: end: 202202
  3. SANDOSTATIN LAR DEPOT [Suspect]
     Active Substance: OCTREOTIDE ACETATE
     Dosage: EVERY 28 DAYS, 30 MG
     Route: 065
     Dates: start: 202203

REACTIONS (9)
  - Loss of consciousness [Unknown]
  - Disease recurrence [Recovering/Resolving]
  - Nausea [Unknown]
  - Diarrhoea [Unknown]
  - Abscess [Unknown]
  - Nasopharyngitis [Unknown]
  - Needle issue [Unknown]
  - Product deposit [Unknown]
  - Off label use [Unknown]

NARRATIVE: CASE EVENT DATE: 20220101
